FAERS Safety Report 8417809 (Version 2)
Quarter: 2012Q4

REPORT INFORMATION
  Report Type: 
  Country: US (occurrence: US)
  Receive Date: 20120221
  Receipt Date: 20120924
  Transmission Date: 20130627
  Serious: No
  Sender: FDA-Public Use
  Company Number: US-PFIZER INC-2012043646

PATIENT
  Age: 47 Year
  Sex: Female
  Weight: 110 kg

DRUGS (2)
  1. DICLOFENAC [Suspect]
     Indication: PAIN
     Dosage: 75 mg, 2x/day
     Route: 048
  2. DILTIAZEM [Concomitant]
     Indication: HYPERTENSION
     Dosage: UNK

REACTIONS (2)
  - Surgery [Unknown]
  - Headache [Unknown]
